FAERS Safety Report 13669316 (Version 1)
Quarter: 2017Q2

REPORT INFORMATION
  Report Type: Spontaneous
  Country: US (occurrence: US)
  Receive Date: 20170620
  Receipt Date: 20170620
  Transmission Date: 20170830
  Serious: No
  Sender: FDA-Public Use
  Company Number: US-ASTRAZENECA-2009BM12810

PATIENT
  Age: 23847 Day
  Sex: Male
  Weight: 104.3 kg

DRUGS (16)
  1. GLUCOTROL [Concomitant]
     Active Substance: GLIPIZIDE
     Indication: TYPE 2 DIABETES MELLITUS
     Route: 048
  2. BYETTA [Suspect]
     Active Substance: EXENATIDE
     Indication: TYPE 2 DIABETES MELLITUS
     Route: 058
     Dates: start: 20100222, end: 2010
  3. BYETTA [Suspect]
     Active Substance: EXENATIDE
     Indication: TYPE 2 DIABETES MELLITUS
     Route: 058
     Dates: start: 2012
  4. BYETTA [Suspect]
     Active Substance: EXENATIDE
     Indication: TYPE 2 DIABETES MELLITUS
     Route: 058
     Dates: start: 20090826
  5. GLUCOPHAGE [Concomitant]
     Active Substance: METFORMIN HYDROCHLORIDE
     Indication: TYPE 2 DIABETES MELLITUS
     Route: 048
  6. BYETTA [Suspect]
     Active Substance: EXENATIDE
     Indication: TYPE 2 DIABETES MELLITUS
     Dosage: 5 MCG FOR BREAKFAST AND LUNCH THEN 10 MCG WITH DINNER
     Route: 058
  7. COUMADIN [Concomitant]
     Active Substance: WARFARIN SODIUM
     Indication: ANTICOAGULANT THERAPY
  8. COUMADIN [Concomitant]
     Active Substance: WARFARIN SODIUM
     Indication: ANTICOAGULANT THERAPY
     Dosage: 5MG/TID 4 TIMES A WEEK S
  9. INSULIN [Concomitant]
     Active Substance: INSULIN NOS
     Indication: DIABETES MELLITUS
     Dosage: THREE TIMES A DAY
  10. NOVOLOG [Concomitant]
     Active Substance: INSULIN ASPART
     Dosage: 25 UNITS FOR BREAKFAST, LUNCH AND DINNER
  11. HUMALOG [Concomitant]
     Active Substance: INSULIN LISPRO
     Dosage: 25 UNITS FOR BREAKFAST, LUNCH AND DINNER
  12. LEVEMIR [Concomitant]
     Active Substance: INSULIN DETEMIR
  13. OMEGA -3 [Concomitant]
  14. GLUCOPHAGE [Concomitant]
     Active Substance: METFORMIN HYDROCHLORIDE
     Indication: TYPE 2 DIABETES MELLITUS
     Dosage: 1000 MG DOSE IN THE MORNING
     Route: 048
  15. GLUCOTROL [Concomitant]
     Active Substance: GLIPIZIDE
     Indication: TYPE 2 DIABETES MELLITUS
     Route: 048
  16. BYETTA [Suspect]
     Active Substance: EXENATIDE
     Indication: TYPE 2 DIABETES MELLITUS
     Route: 058
     Dates: start: 20090726, end: 20090826

REACTIONS (24)
  - Prothrombin time prolonged [Unknown]
  - Blood glucose decreased [Unknown]
  - Alopecia [Unknown]
  - Drug dispensing error [Unknown]
  - Off label use [Unknown]
  - Drug effect incomplete [Unknown]
  - Influenza like illness [Recovering/Resolving]
  - Pollakiuria [Not Recovered/Not Resolved]
  - Glycosylated haemoglobin decreased [Unknown]
  - Weight decreased [Unknown]
  - Product quality issue [Unknown]
  - Memory impairment [Unknown]
  - Epistaxis [Unknown]
  - Asthenia [Recovering/Resolving]
  - Constipation [Unknown]
  - Drug ineffective [Unknown]
  - Inappropriate schedule of drug administration [Unknown]
  - Disturbance in attention [Recovering/Resolving]
  - Dizziness [Recovering/Resolving]
  - Drug prescribing error [Unknown]
  - Intentional product misuse [Unknown]
  - Blood glucose increased [Unknown]
  - Headache [Recovered/Resolved]
  - Product use issue [Unknown]

NARRATIVE: CASE EVENT DATE: 20090726
